FAERS Safety Report 20068493 (Version 1)
Quarter: 2021Q4

REPORT INFORMATION
  Report Type: Spontaneous
  Country: FR (occurrence: FR)
  Receive Date: 20211115
  Receipt Date: 20211115
  Transmission Date: 20220303
  Serious: Yes (Hospitalization, Congenital Anomaly, Other)
  Sender: FDA-Public Use
  Company Number: FR-ABBVIE-21K-056-4160581-00

PATIENT
  Sex: Male

DRUGS (2)
  1. VALPROATE SODIUM [Suspect]
     Active Substance: VALPROATE SODIUM
     Indication: Maternal exposure timing unspecified
     Route: 064
  2. FOLIC ACID [Concomitant]
     Active Substance: FOLIC ACID
     Indication: Product used for unknown indication
     Dates: end: 20030701

REACTIONS (39)
  - Heart disease congenital [Unknown]
  - Pneumonia mycoplasmal [Unknown]
  - Eyelid cyst removal [Unknown]
  - Enchondromatosis [Unknown]
  - Respiratory distress [Unknown]
  - Retinal coloboma [Unknown]
  - Talipes [Unknown]
  - Foot deformity [Unknown]
  - Patent ductus arteriosus [Unknown]
  - Anomaly of external ear congenital [Unknown]
  - Limb malformation [Unknown]
  - Conductive deafness [Unknown]
  - Congenital eye disorder [Unknown]
  - Foetal macrosomia [Unknown]
  - Dysgraphia [Unknown]
  - Talipes [Unknown]
  - Dysmorphism [Unknown]
  - Psychomotor skills impaired [Unknown]
  - Strabismus [Unknown]
  - Iris coloboma [Unknown]
  - Aphasia [Unknown]
  - Amblyopia strabismic [Unknown]
  - Language disorder [Unknown]
  - Behaviour disorder [Unknown]
  - Eye disorder [Unknown]
  - Disturbance in attention [Unknown]
  - Fine motor delay [Unknown]
  - Speech sound disorder [Unknown]
  - Microphthalmos [Unknown]
  - Cognitive disorder [Unknown]
  - Jaundice neonatal [Unknown]
  - Coombs test positive [Unknown]
  - Cardiac murmur [Unknown]
  - Ear, nose and throat disorder [Unknown]
  - Ear, nose and throat disorder [Unknown]
  - Ear, nose and throat disorder [Unknown]
  - Gastrooesophageal reflux disease [Unknown]
  - Hypoacusis [Unknown]
  - Foetal exposure during pregnancy [Unknown]

NARRATIVE: CASE EVENT DATE: 20031229
